FAERS Safety Report 10522177 (Version 1)
Quarter: 2014Q4

REPORT INFORMATION
  Report Type: Spontaneous
  Country: US (occurrence: US)
  Receive Date: 20141016
  Receipt Date: 20141016
  Transmission Date: 20150528
  Serious: Yes (Other)
  Sender: FDA-Public Use
  Company Number: US-TEVA-515864USA

PATIENT
  Age: 39 Year
  Sex: Female
  Weight: 52.66 kg

DRUGS (1)
  1. PARAGARD T380A [Suspect]
     Active Substance: COPPER
     Indication: CONTRACEPTION
     Route: 015
     Dates: start: 20140622, end: 20141013

REACTIONS (4)
  - Menorrhagia [Unknown]
  - Anaemia [Unknown]
  - Pelvic pain [Unknown]
  - Uterine polypectomy [Recovered/Resolved]

NARRATIVE: CASE EVENT DATE: 201407
